FAERS Safety Report 12098663 (Version 3)
Quarter: 2016Q1

REPORT INFORMATION
  Report Type: Spontaneous
  Country: KR (occurrence: KR)
  Receive Date: 20160222
  Receipt Date: 20160317
  Transmission Date: 20160526
  Serious: Yes (Hospitalization)
  Sender: FDA-Public Use
  Company Number: KR-009507513-1602KOR008430

PATIENT
  Age: 71 Year
  Sex: Male
  Weight: 70 kg

DRUGS (6)
  1. CORDARONE [Concomitant]
     Active Substance: AMIODARONE HYDROCHLORIDE
     Indication: ATRIAL FLUTTER
     Dosage: 200 MG, BID
     Route: 048
     Dates: start: 20151217, end: 20160106
  2. ATOZET [Suspect]
     Active Substance: ATORVASTATIN CALCIUM\EZETIMIBE
     Indication: HYPERCHOLESTEROLAEMIA
     Dosage: 1 TABLET, ONCE DAILY
     Route: 048
     Dates: start: 20150921
  3. CLOPIRIN [Concomitant]
     Indication: THROMBOSIS PROPHYLAXIS
     Dosage: 1 CAPSULE, QD
     Route: 048
     Dates: start: 20150910
  4. DILATREND [Concomitant]
     Active Substance: CARVEDILOL
     Indication: VENTRICULAR EXTRASYSTOLES
     Dosage: 6.25 MG, BID
     Route: 048
     Dates: start: 20151217, end: 20160106
  5. ACERTIL [Concomitant]
     Active Substance: PERINDOPRIL ARGININE
     Indication: ATRIAL FLUTTER
     Dosage: 2 MG, QD
     Route: 048
     Dates: start: 20150910, end: 20160110
  6. SERMION [Concomitant]
     Active Substance: NICERGOLINE
     Indication: PERIPHERAL ARTERIAL OCCLUSIVE DISEASE
     Dosage: 10 MG, BID
     Route: 048
     Dates: start: 20150620, end: 20160309

REACTIONS (2)
  - Hyperkalaemia [Recovered/Resolved]
  - Bradycardia [Recovered/Resolved]

NARRATIVE: CASE EVENT DATE: 20160105
